FAERS Safety Report 8244819-8 (Version None)
Quarter: 2012Q1

REPORT INFORMATION
  Report Type: 
  Country: None (occurrence: None)
  Receive Date: 20120329
  Receipt Date: 20110516
  Transmission Date: 20120608
  Serious: No
  Sender: FDA-Public Use
  Company Number: US-MYLANLABS-2011S1010287

PATIENT
  Age: 51 Year
  Sex: Female
  Weight: 52.16 kg

DRUGS (4)
  1. FENTANYL-100 [Suspect]
     Indication: BACK PAIN
     Dosage: Q72
     Route: 048
     Dates: start: 20110101
  2. ZOLOFT /01011402/ [Concomitant]
     Dates: start: 20100101
  3. KLONOPIN [Concomitant]
     Dates: start: 20100101
  4. HYDROCODONE BITARTRATE [Concomitant]
     Dates: start: 20100101

REACTIONS (1)
  - DRUG SCREEN NEGATIVE [None]
